FAERS Safety Report 9182123 (Version 3)
Quarter: 2013Q2

REPORT INFORMATION
  Report Type: Spontaneous
  Country: JP (occurrence: JP)
  Receive Date: 20130322
  Receipt Date: 20130604
  Transmission Date: 20140414
  Serious: Yes (Life-Threatening, Hospitalization, Other)
  Sender: FDA-Public Use
  Company Number: JP-PFIZER INC-2013076441

PATIENT
  Age: 84 Year
  Sex: Male
  Weight: 46 kg

DRUGS (6)
  1. LYRICA [Suspect]
     Indication: SPINAL COLUMN STENOSIS
     Dosage: 150 MG/DAY
     Route: 048
     Dates: start: 20130301, end: 20130304
  2. HOCHUUEKKITOU [Concomitant]
     Dosage: UNK
     Route: 048
  3. LIVALO [Concomitant]
     Dosage: UNK
     Route: 048
  4. METHYCOBAL [Concomitant]
     Dosage: UNK
     Route: 048
  5. GOSYAZINKIGAN [Concomitant]
     Dosage: UNK
     Route: 048
  6. ONBREZ [Concomitant]
     Dosage: UNK
     Route: 048

REACTIONS (8)
  - Pulmonary oedema [Recovering/Resolving]
  - Hypertension [Unknown]
  - PCO2 increased [Recovered/Resolved]
  - C-reactive protein increased [Recovered/Resolved]
  - Pyrexia [Recovering/Resolving]
  - Dizziness [Recovered/Resolved]
  - Altered state of consciousness [Unknown]
  - Atrial fibrillation [Unknown]
